FAERS Safety Report 15566254 (Version 3)
Quarter: 2018Q4

REPORT INFORMATION
  Report Type: Report from Study
  Country: None (occurrence: ES)
  Receive Date: 20181030
  Receipt Date: 20181112
  Transmission Date: 20190205
  Serious: Yes (Death, Life-Threatening, Disabling, Other)
  Sender: FDA-Public Use
  Company Number: ES-ABBVIE-18S-144-2536591-00

PATIENT
  Age: 71 Year
  Sex: Male
  Weight: 104 kg

DRUGS (1)
  1. DUODOPA [Suspect]
     Active Substance: CARBIDOPA\LEVODOPA
     Indication: PARKINSON^S DISEASE
     Route: 050
     Dates: start: 20180808

REACTIONS (3)
  - Spinal cord injury [Fatal]
  - Initial insomnia [Unknown]
  - Road traffic accident [Unknown]

NARRATIVE: CASE EVENT DATE: 201810
